FAERS Safety Report 14029126 (Version 1)
Quarter: 2017Q3

REPORT INFORMATION
  Report Type: Spontaneous
  Country: US (occurrence: US)
  Receive Date: 20170930
  Receipt Date: 20170930
  Transmission Date: 20171128
  Serious: No
  Sender: FDA-Public Use
  Company Number: US-SA-2017SA119075

PATIENT
  Age: 49 Year
  Sex: Female
  Weight: 68.4 kg

DRUGS (3)
  1. TYLENOL [Concomitant]
     Active Substance: ACETAMINOPHEN
  2. AUBAGIO [Suspect]
     Active Substance: TERIFLUNOMIDE
     Indication: MULTIPLE SCLEROSIS
     Route: 048
     Dates: start: 201706
  3. ADVIL [Concomitant]
     Active Substance: IBUPROFEN

REACTIONS (8)
  - Condition aggravated [Unknown]
  - Stress [Unknown]
  - Paraesthesia [Unknown]
  - Depressed mood [Unknown]
  - Depression [Unknown]
  - Blood cholesterol increased [Unknown]
  - Hypoaesthesia [Unknown]
  - White blood cell count decreased [Unknown]

NARRATIVE: CASE EVENT DATE: 201706
